FAERS Safety Report 18724744 (Version 1)
Quarter: 2021Q1

REPORT INFORMATION
  Report Type: Spontaneous
  Country: US (occurrence: US)
  Receive Date: 20210111
  Receipt Date: 20210111
  Transmission Date: 20210419
  Serious: Yes (Hospitalization)
  Sender: FDA-Public Use
  Company Number: None

PATIENT
  Age: 58 Year
  Sex: Female

DRUGS (2)
  1. MAYZENT [Suspect]
     Active Substance: SIPONIMOD
     Indication: MULTIPLE SCLEROSIS
     Route: 048
     Dates: start: 20200422
  2. NONE LISTED [Concomitant]

REACTIONS (6)
  - Adverse drug reaction [None]
  - Cerebrovascular accident [None]
  - Hypertension [None]
  - Neck pain [None]
  - Condition aggravated [None]
  - Back pain [None]

NARRATIVE: CASE EVENT DATE: 20210102
